FAERS Safety Report 15898424 (Version 2)
Quarter: 2019Q2

REPORT INFORMATION
  Report Type: Spontaneous
  Country: US (occurrence: US)
  Receive Date: 20190201
  Receipt Date: 20190430
  Transmission Date: 20190711
  Serious: No
  Sender: FDA-Public Use
  Company Number: US-009507513-1901USA010283

PATIENT
  Age: 31 Year
  Sex: Female
  Weight: 86.2 kg

DRUGS (6)
  1. CITALOPRAM [Concomitant]
     Active Substance: CITALOPRAM HYDROBROMIDE
     Indication: DEPRESSION
     Dosage: 20 MILLIGRAM
     Route: 048
  2. LACTOBACILLUS (UNSPECIFIED) [Concomitant]
     Dosage: UNK
  3. INVANZ [Suspect]
     Active Substance: ERTAPENEM SODIUM
     Indication: MYELITIS
     Dosage: 1 GRAM, QD (1 G DAILY)
     Dates: start: 20181212, end: 20190123
  4. INVANZ [Suspect]
     Active Substance: ERTAPENEM SODIUM
     Dosage: 1 GRAM, QD (1 G DAILY)
     Dates: start: 20181212, end: 20190123
  5. LEVONORGESTREL. [Concomitant]
     Active Substance: LEVONORGESTREL
     Indication: CONTRACEPTION
     Dosage: ^20 MCG/20 HC^
     Route: 042
  6. INVANZ [Suspect]
     Active Substance: ERTAPENEM SODIUM
     Dosage: 1 GRAM, QD (1 G DAILY)
     Dates: start: 20181212, end: 20190123

REACTIONS (2)
  - Tooth discolouration [Not Recovered/Not Resolved]
  - Tooth discolouration [Unknown]

NARRATIVE: CASE EVENT DATE: 20181212
